FAERS Safety Report 22101290 (Version 1)
Quarter: 2023Q1

REPORT INFORMATION
  Report Type: Spontaneous
  Country: CH (occurrence: CH)
  Receive Date: 20230316
  Receipt Date: 20230316
  Transmission Date: 20230417
  Serious: Yes (Hospitalization, Other)
  Sender: FDA-Public Use
  Company Number: None

PATIENT
  Age: 62 Year
  Sex: Male
  Weight: 79.7 kg

DRUGS (5)
  1. KYPROLIS [Suspect]
     Active Substance: CARFILZOMIB
     Indication: Plasma cell myeloma
     Dosage: UNK UNK, CYCLICAL
     Route: 042
     Dates: start: 2021
  2. KYPROLIS [Suspect]
     Active Substance: CARFILZOMIB
     Dosage: 36 MILLIGRAM (20 MG/M2)
     Route: 042
     Dates: start: 20221026
  3. KYPROLIS [Suspect]
     Active Substance: CARFILZOMIB
     Dosage: 100 MILLIGRAM
     Route: 042
     Dates: end: 20221101
  4. COVID-19 VACCINE NOS [Suspect]
     Active Substance: COVID-19 VACCINE NOS
     Indication: COVID-19 immunisation
     Dosage: UNK
     Route: 065
     Dates: start: 20221031, end: 20221031
  5. ASPIRIN [Concomitant]
     Active Substance: ASPIRIN
     Indication: Product used for unknown indication
     Dosage: 100 MILLIGRAM
     Route: 048
     Dates: start: 2021, end: 20221104

REACTIONS (9)
  - Haemolytic anaemia [Recovering/Resolving]
  - Thrombotic microangiopathy [Recovering/Resolving]
  - Acute kidney injury [Not Recovered/Not Resolved]
  - Thrombocytopenia [Recovering/Resolving]
  - Pyrexia [Recovering/Resolving]
  - Cough [Recovering/Resolving]
  - Dyspnoea [Recovering/Resolving]
  - Tachycardia [Recovering/Resolving]
  - Epistaxis [Recovered/Resolved]

NARRATIVE: CASE EVENT DATE: 20221031
